FAERS Safety Report 4751511-0 (Version None)
Quarter: 2005Q3

REPORT INFORMATION
  Report Type: 
  Country: None (occurrence: None)
  Receive Date: 20050823
  Receipt Date: 20050823
  Transmission Date: 20060218
  Serious: Yes (Other)
  Sender: FDA-Public Use
  Company Number: None

PATIENT
  Age: 74 Year
  Sex: Male
  Weight: 86.1834 kg

DRUGS (1)
  1. HYDROCHLOROTHIAZIDE [Suspect]
     Indication: HYPERTENSION
     Dosage: EVERY DAY, ORAL
     Route: 048
     Dates: start: 20050404, end: 20050410

REACTIONS (5)
  - DRUG ERUPTION [None]
  - ORAL INTAKE REDUCED [None]
  - RASH MACULO-PAPULAR [None]
  - RASH PRURITIC [None]
  - RESTLESSNESS [None]
